FAERS Safety Report 10170158 (Version 1)
Quarter: 2014Q2

REPORT INFORMATION
  Report Type: Spontaneous
  Country: US (occurrence: US)
  Receive Date: 20140513
  Receipt Date: 20140513
  Transmission Date: 20141212
  Serious: No
  Sender: FDA-Public Use
  Company Number: US-BAYER-2014-070861

PATIENT
  Sex: Male

DRUGS (2)
  1. XOFIGO [Suspect]
     Indication: HORMONE-REFRACTORY PROSTATE CANCER
  2. XOFIGO [Suspect]
     Indication: METASTASES TO BONE

REACTIONS (1)
  - Diarrhoea [None]
